FAERS Safety Report 12262682 (Version 1)
Quarter: 2016Q2

REPORT INFORMATION
  Report Type: Spontaneous
  Country: US (occurrence: US)
  Receive Date: 20160413
  Receipt Date: 20160413
  Transmission Date: 20160815
  Serious: No
  Sender: FDA-Public Use
  Company Number: US-BAUSCH-BL-2015-012380

PATIENT
  Age: 86 Year
  Sex: Female

DRUGS (1)
  1. ARESTIN [Suspect]
     Active Substance: MINOCYCLINE HYDROCHLORIDE
     Indication: TOOTH DISORDER
     Dates: start: 201412, end: 201412

REACTIONS (5)
  - Photophobia [Recovering/Resolving]
  - Blood potassium abnormal [Unknown]
  - Decreased appetite [Recovering/Resolving]
  - Headache [Recovering/Resolving]
  - Oral pain [Recovering/Resolving]

NARRATIVE: CASE EVENT DATE: 201412
